FAERS Safety Report 5422988-2 (Version None)
Quarter: 2007Q3

REPORT INFORMATION
  Report Type: 
  Country: None (occurrence: None)
  Receive Date: 20070822
  Receipt Date: 20070817
  Transmission Date: 20080115
  Serious: Yes (Life-Threatening, Hospitalization)
  Sender: FDA-Public Use
  Company Number: US-MERCK-0708USA03336

PATIENT
  Age: 55 Year
  Sex: Male

DRUGS (6)
  1. JANUMET [Suspect]
     Indication: DIABETES MELLITUS
     Route: 048
     Dates: start: 20070807, end: 20070801
  2. JANUMET [Suspect]
     Route: 048
     Dates: start: 20070801, end: 20070815
  3. JANUVIA [Concomitant]
     Route: 048
     Dates: end: 20070807
  4. JANUVIA [Concomitant]
     Route: 048
     Dates: start: 20070801
  5. METFORMIN [Concomitant]
     Route: 065
     Dates: end: 20070807
  6. METFORMIN [Concomitant]
     Route: 065
     Dates: start: 20070801

REACTIONS (3)
  - CHEST PAIN [None]
  - DYSPNOEA [None]
  - HYPERHIDROSIS [None]
